FAERS Safety Report 7978232-5 (Version None)
Quarter: 2011Q4

REPORT INFORMATION
  Report Type: 
  Country: None (occurrence: None)
  Receive Date: 20111214
  Receipt Date: 20111201
  Transmission Date: 20120403
  Serious: Yes (Hospitalization)
  Sender: FDA-Public Use
  Company Number: IT-PFIZER INC-2010177395

PATIENT
  Age: 55 Year
  Sex: Male

DRUGS (7)
  1. LAMICTAL [Concomitant]
     Dosage: 50 MG, UNK
  2. DELORAZEPAM [Concomitant]
     Dosage: UNK
     Route: 048
  3. CARDURA [Concomitant]
     Dosage: 4 MG, UNK
  4. RAMIPRIL [Suspect]
     Indication: HYPERTENSION
     Dosage: 2.5 MG, DAILY
     Route: 048
     Dates: start: 20101207, end: 20101214
  5. NORVASC [Concomitant]
     Dosage: 10 MG, UNK
  6. ASPIRIN [Concomitant]
     Dosage: UNK
  7. TEGRETOL [Concomitant]
     Indication: EPILEPSY
     Dosage: 400 MG, UNK

REACTIONS (5)
  - PRURITUS [None]
  - ARTHRALGIA [None]
  - MYALGIA [None]
  - ERYTHEMA [None]
  - SKIN BURNING SENSATION [None]
